FAERS Safety Report 6344195-1 (Version None)
Quarter: 2009Q3

REPORT INFORMATION
  Report Type: 
  Country: None (occurrence: None)
  Receive Date: 20090908
  Receipt Date: 20090824
  Transmission Date: 20100115
  Serious: Yes (Hospitalization)
  Sender: FDA-Public Use
  Company Number: FR-PFIZER INC-2009259728

PATIENT
  Age: 54 Year

DRUGS (5)
  1. CAMPTOSAR [Suspect]
     Indication: COLORECTAL CANCER METASTATIC
     Dosage: 480 MG
     Route: 042
     Dates: start: 20080724, end: 20080724
  2. FLUOROURACIL [Suspect]
     Indication: COLORECTAL CANCER METASTATIC
     Dosage: 4350 MG
     Route: 042
     Dates: start: 20080724, end: 20080726
  3. AVASTIN [Suspect]
     Indication: COLORECTAL CANCER METASTATIC
     Dosage: 325 MG
     Route: 042
     Dates: start: 20080724, end: 20080724
  4. TIENAM [Suspect]
     Indication: PYREXIA
     Route: 042
     Dates: start: 20080809, end: 20080820
  5. AMIKLIN [Suspect]
     Indication: PYREXIA
     Route: 042
     Dates: start: 20080809, end: 20080814

REACTIONS (1)
  - FISTULA [None]
